FAERS Safety Report 24435118 (Version 4)
Quarter: 2024Q4

REPORT INFORMATION
  Report Type: Spontaneous
  Country: JP (occurrence: JP)
  Receive Date: 20241014
  Receipt Date: 20241223
  Transmission Date: 20250115
  Serious: Yes (Hospitalization, Other)
  Sender: AMGEN
  Company Number: JP-KYOWAKIRIN-2024KK022935

PATIENT
  Age: 72 Year
  Sex: Female

DRUGS (14)
  1. PEGFILGRASTIM [Suspect]
     Active Substance: PEGFILGRASTIM
     Indication: Colony stimulating factor therapy
     Dosage: 3.6 MG
     Route: 058
     Dates: start: 20240814, end: 20240814
  2. EPIRUBICIN [Concomitant]
     Active Substance: EPIRUBICIN
     Indication: Triple negative breast cancer
     Dosage: 90 MG/M2, 1X/3 WEEKS
     Route: 042
     Dates: start: 20240813, end: 20240813
  3. EPIRUBICIN [Concomitant]
     Active Substance: EPIRUBICIN
     Dosage: UNK
     Route: 065
     Dates: start: 20240903, end: 20240903
  4. CYCLOPHOSPHAMIDE [Concomitant]
     Active Substance: CYCLOPHOSPHAMIDE
     Indication: Product used for unknown indication
     Dosage: UNK
     Route: 065
  5. KEYTRUDA [Concomitant]
     Active Substance: PEMBROLIZUMAB
     Indication: Triple negative breast cancer
     Dosage: 200 MG, 1X/3 WEEKS
     Route: 042
     Dates: start: 20240514, end: 20240813
  6. KEYTRUDA [Concomitant]
     Active Substance: PEMBROLIZUMAB
     Dosage: UNK
     Route: 065
     Dates: start: 20240903, end: 20240903
  7. CYCLOPHOSPHAMIDE [Concomitant]
     Active Substance: CYCLOPHOSPHAMIDE
     Indication: Triple negative breast cancer
     Dosage: 600 MG/M2, 1X/3 WEEKS
     Route: 042
     Dates: start: 20240813, end: 20240813
  8. CYCLOPHOSPHAMIDE [Concomitant]
     Active Substance: CYCLOPHOSPHAMIDE
     Dosage: UNK
     Route: 065
     Dates: start: 20240903, end: 20240903
  9. DEXAMETHASONE SODIUM PHOSPHATE [Concomitant]
     Active Substance: DEXAMETHASONE SODIUM PHOSPHATE
     Indication: Nausea
     Dosage: 9.9 MG, 1X/3 WEEKS
     Route: 042
     Dates: start: 20240813, end: 20240813
  10. PALONOSETRON [Concomitant]
     Active Substance: PALONOSETRON
     Indication: Nausea
     Dosage: 0.75 MG, 1X/3 WEEKS
     Route: 042
     Dates: start: 20240813, end: 20240813
  11. FOSNETUPITANT CHLORIDE HYDROCHLORIDE [Concomitant]
     Active Substance: FOSNETUPITANT CHLORIDE HYDROCHLORIDE
     Indication: Nausea
     Dosage: 235 MG, 1X/3 WEEKS
     Route: 042
     Dates: start: 20240813, end: 20240813
  12. DECADRON [Concomitant]
     Active Substance: DEXAMETHASONE
     Indication: Nausea
     Dosage: 4 MG, BID
     Route: 048
     Dates: start: 20240814, end: 20240816
  13. OLANZAPINE [Concomitant]
     Active Substance: OLANZAPINE
     Indication: Nausea
     Dosage: 5 MG, QD
     Route: 048
     Dates: start: 20240813, end: 20240818
  14. DOMPERIDONE [Concomitant]
     Active Substance: DOMPERIDONE
     Indication: Nausea
     Dosage: 10 MG, TID,IN THE EVENT OF QUEASY
     Route: 048

REACTIONS (4)
  - Febrile neutropenia [Recovered/Resolved]
  - Taste disorder [Recovering/Resolving]
  - Colony stimulating factor therapy [Unknown]
  - Therapeutic product effect incomplete [Unknown]

NARRATIVE: CASE EVENT DATE: 20240816
